FAERS Safety Report 6614540-8 (Version None)
Quarter: 2010Q1

REPORT INFORMATION
  Report Type: 
  Country: None (occurrence: None)
  Receive Date: 20100304
  Receipt Date: 20100304
  Transmission Date: 20100710
  Serious: Yes (Life-Threatening)
  Sender: FDA-Public Use
  Company Number: None

PATIENT
  Sex: Male
  Weight: 66.9056 kg

DRUGS (13)
  1. MYLOTARG [Suspect]
     Indication: ACUTE MYELOID LEUKAEMIA
     Dosage: 9MG/M2=15MG Q2WEEKS IV
     Route: 042
     Dates: start: 20100126
  2. MYLOTARG [Suspect]
     Indication: ACUTE MYELOID LEUKAEMIA
     Dosage: 9MG/M2=15MG Q2WEEKS IV
     Route: 042
     Dates: start: 20100222
  3. TYLENOL-500 [Concomitant]
  4. BENADRYL [Concomitant]
  5. SOLU-MEDROL [Concomitant]
  6. VASOTEC [Concomitant]
  7. PAXIL [Concomitant]
  8. FLEXERIL [Concomitant]
  9. OXYCODONE HCL [Concomitant]
  10. DURAGESIC-100 [Concomitant]
  11. ZITHROMAX [Concomitant]
  12. ZOFRAN [Concomitant]
  13. CYTARABINE [Concomitant]

REACTIONS (6)
  - CHEST PAIN [None]
  - HYPOTENSION [None]
  - HYPOXIA [None]
  - PRURITUS [None]
  - TACHYCARDIA [None]
  - URTICARIA [None]
